FAERS Safety Report 8770358 (Version 2)
Quarter: 2012Q4

REPORT INFORMATION
  Report Type: 
  Country: FR (occurrence: FR)
  Receive Date: 20120906
  Receipt Date: 20120918
  Transmission Date: 20130627
  Serious: No
  Sender: FDA-Public Use
  Company Number: FR-JNJFOC-20120814133

PATIENT
  Age: 52 Year
  Sex: Female
  Weight: 62 kg

DRUGS (6)
  1. DUROGESIC [Suspect]
     Indication: PAIN
     Route: 062
     Dates: end: 20120904
  2. DUROGESIC [Suspect]
     Indication: PAIN
     Route: 062
     Dates: start: 20120824
  3. DUROGESIC [Suspect]
     Indication: PAIN
     Route: 062
     Dates: start: 20120822, end: 20120824
  4. DUROGESIC [Suspect]
     Indication: PAIN
     Route: 062
     Dates: start: 20120810, end: 20120822
  5. SKENAN [Concomitant]
     Route: 065
  6. ACTISKENAN [Concomitant]
     Indication: PAIN
     Route: 065
     Dates: start: 20120810, end: 20120904

REACTIONS (3)
  - Incorrect dose administered [Recovered/Resolved]
  - Nausea [Unknown]
  - Somnolence [Unknown]
